FAERS Safety Report 6961116-9 (Version None)
Quarter: 2010Q3

REPORT INFORMATION
  Report Type: 
  Country: None (occurrence: None)
  Receive Date: 20100901
  Receipt Date: 20100823
  Transmission Date: 20110219
  Serious: Yes (Hospitalization)
  Sender: FDA-Public Use
  Company Number: US-JNJFOC-20100808184

PATIENT
  Sex: Male
  Weight: 85.73 kg

DRUGS (3)
  1. RISPERDAL [Suspect]
     Indication: ANXIETY
     Route: 048
  2. LAMICTAL [Concomitant]
     Indication: PERSONALITY DISORDER
     Route: 048
  3. FLURAZEPAM [Concomitant]
     Indication: ANXIETY
     Route: 048

REACTIONS (3)
  - ABNORMAL BEHAVIOUR [None]
  - GASTROOESOPHAGEAL REFLUX DISEASE [None]
  - TREATMENT NONCOMPLIANCE [None]
